FAERS Safety Report 14855549 (Version 1)
Quarter: 2018Q2

REPORT INFORMATION
  Report Type: Spontaneous
  Country: US (occurrence: US)
  Receive Date: 20180507
  Receipt Date: 20180507
  Transmission Date: 20180711
  Serious: No
  Sender: FDA-Public Use
  Company Number: US-ROCHE-1939816

PATIENT
  Sex: Female

DRUGS (4)
  1. ESBRIET [Suspect]
     Active Substance: PIRFENIDONE
     Indication: IDIOPATHIC PULMONARY FIBROSIS
     Route: 048
     Dates: start: 20160101
  2. FISH OIL [Concomitant]
     Active Substance: FISH OIL
  3. ESBRIET [Suspect]
     Active Substance: PIRFENIDONE
     Route: 048
     Dates: start: 20160913
  4. DELSYM [Concomitant]
     Active Substance: DEXTROMETHORPHAN

REACTIONS (3)
  - Medication error [Unknown]
  - Cough [Unknown]
  - Lung disorder [Unknown]
